FAERS Safety Report 23573669 (Version 3)
Quarter: 2024Q1

REPORT INFORMATION
  Report Type: Spontaneous
  Country: EG (occurrence: EG)
  Receive Date: 20240228
  Receipt Date: 20240308
  Transmission Date: 20240409
  Serious: Yes (Death, Other)
  Sender: FDA-Public Use
  Company Number: EG-ABBVIE-5656087

PATIENT
  Age: 1 Day
  Sex: Male

DRUGS (1)
  1. SURVANTA [Suspect]
     Active Substance: BERACTANT
     Indication: Product used for unknown indication
     Dosage: 25 MG/ML WITH A DOSE OF 7 ML ONCE
     Route: 039

REACTIONS (3)
  - Pulmonary haemorrhage [Fatal]
  - Sepsis neonatal [Fatal]
  - Respiratory distress [Fatal]
